FAERS Safety Report 16234753 (Version 1)
Quarter: 2019Q2

REPORT INFORMATION
  Report Type: Spontaneous
  Country: FR (occurrence: FR)
  Receive Date: 20190424
  Receipt Date: 20190424
  Transmission Date: 20190711
  Serious: Yes (Death, Hospitalization, Other)
  Sender: FDA-Public Use
  Company Number: FR-MYLANLABS-2019M1037212

PATIENT
  Age: 68 Year
  Sex: Female

DRUGS (1)
  1. ISOPTIN [Suspect]
     Active Substance: VERAPAMIL HYDROCHLORIDE
     Indication: PRODUCT USED FOR UNKNOWN INDICATION
     Dosage: 96 DOSAGE FORM, TOTAL
     Route: 048
     Dates: start: 20170916, end: 20170916

REACTIONS (8)
  - Septic shock [Fatal]
  - Abdominal pain [Recovered/Resolved]
  - Malaise [Recovered/Resolved]
  - Suicide attempt [Unknown]
  - Cardiac failure [Fatal]
  - Hypotension [Fatal]
  - Vomiting [Recovered/Resolved]
  - Toxicity to various agents [Recovered/Resolved]

NARRATIVE: CASE EVENT DATE: 20170916
